FAERS Safety Report 14402876 (Version 3)
Quarter: 2018Q1

REPORT INFORMATION
  Report Type: Spontaneous
  Country: FR (occurrence: FR)
  Receive Date: 20180117
  Receipt Date: 20180209
  Transmission Date: 20180509
  Serious: Yes (Other)
  Sender: FDA-Public Use
  Company Number: FR-PFIZER INC-2018021208

PATIENT
  Age: 75 Year
  Sex: Female
  Weight: 81 kg

DRUGS (8)
  1. RIFADINE [Suspect]
     Active Substance: RIFAMPIN
     Indication: MENINGITIS TUBERCULOUS
     Dosage: 1200 MG, 1X/DAY
     Route: 042
     Dates: start: 20171218, end: 20171226
  2. FEMARA [Suspect]
     Active Substance: LETROZOLE
     Indication: BREAST CANCER
     Dosage: 1 DF, 1X/DAY
     Route: 048
     Dates: start: 20171222, end: 20171225
  3. SOLU-MEDROL [Suspect]
     Active Substance: METHYLPREDNISOLONE SODIUM SUCCINATE
     Indication: BRAIN OEDEMA
     Dosage: 80 MG, 1X/DAY
     Route: 042
     Dates: start: 20171218
  4. KALEORID [Suspect]
     Active Substance: POTASSIUM CHLORIDE
     Indication: MINERAL SUPPLEMENTATION
     Dosage: 1 DF, 1X/DAY
     Route: 048
     Dates: end: 20171225
  5. RIMIFON [Suspect]
     Active Substance: ISONIAZID
     Indication: MENINGITIS TUBERCULOUS
     Dosage: 400 MG, 1X/DAY
     Route: 048
     Dates: start: 20171218, end: 20171225
  6. PIRILENE [Suspect]
     Active Substance: PYRAZINAMIDE
     Indication: MENINGITIS TUBERCULOUS
     Dosage: 2 G, 1X/DAY
     Route: 048
     Dates: start: 20171218, end: 20171225
  7. DEXAMBUTOL [Suspect]
     Active Substance: ETHAMBUTOL HYDROCHLORIDE
     Indication: MENINGITIS TUBERCULOUS
     Dosage: 1.6 G, 1X/DAY
     Route: 048
     Dates: start: 20171218, end: 20171226
  8. PARACETAMOL [Suspect]
     Active Substance: ACETAMINOPHEN
     Indication: GAIT DISTURBANCE
     Dosage: 3 G, 1X/DAY
     Route: 048
     Dates: end: 20171225

REACTIONS (3)
  - Hepatocellular injury [Recovering/Resolving]
  - Gamma-glutamyltransferase increased [Recovering/Resolving]
  - Blood bilirubin increased [Recovering/Resolving]

NARRATIVE: CASE EVENT DATE: 20171223
